FAERS Safety Report 6838174-5 (Version None)
Quarter: 2010Q3

REPORT INFORMATION
  Report Type: 
  Country: None (occurrence: None)
  Receive Date: 20100713
  Receipt Date: 20070601
  Transmission Date: 20110219
  Serious: No
  Sender: FDA-Public Use
  Company Number: US-PFIZER INC-2007046159

PATIENT
  Sex: Female
  Weight: 77.272 kg

DRUGS (5)
  1. CHANTIX [Suspect]
     Indication: SMOKING CESSATION THERAPY
     Dates: start: 20070507
  2. LEXAPRO [Concomitant]
  3. XALATAN [Concomitant]
  4. ALLEGRA [Concomitant]
  5. TIMOPTIC [Concomitant]

REACTIONS (2)
  - DEPRESSION [None]
  - FATIGUE [None]
